FAERS Safety Report 24705567 (Version 2)
Quarter: 2025Q1

REPORT INFORMATION
  Report Type: Spontaneous
  Country: US (occurrence: US)
  Receive Date: 20241206
  Receipt Date: 20250220
  Transmission Date: 20250409
  Serious: Yes (Other)
  Sender: AUROBINDO
  Company Number: US-MLMSERVICE-20241115-PI257984-00303-1

PATIENT
  Age: 39 Year
  Sex: Female

DRUGS (3)
  1. SPIRONOLACTONE [Suspect]
     Active Substance: SPIRONOLACTONE
     Indication: Primary hyperaldosteronism
     Route: 065
     Dates: start: 2019, end: 2019
  2. EPLERENONE [Suspect]
     Active Substance: EPLERENONE
     Indication: Primary hyperaldosteronism
     Route: 065
  3. SODIUM CHLORIDE [Suspect]
     Active Substance: SODIUM CHLORIDE
     Indication: Primary hyperaldosteronism
     Route: 048

REACTIONS (2)
  - Hyponatraemia [Recovering/Resolving]
  - Drug ineffective [Unknown]

NARRATIVE: CASE EVENT DATE: 20190101
